FAERS Safety Report 6773269-6 (Version None)
Quarter: 2010Q2

REPORT INFORMATION
  Report Type: 
  Country: None (occurrence: None)
  Receive Date: 20100616
  Receipt Date: 20100325
  Transmission Date: 20101027
  Serious: No
  Sender: FDA-Public Use
  Company Number: US-ABBOTT-10P-163-0634713-00

PATIENT
  Sex: Female
  Weight: 58.566 kg

DRUGS (3)
  1. TRILIPIX [Suspect]
     Indication: DRUG USE FOR UNKNOWN INDICATION
     Dates: start: 20100201
  2. HYDROXYUREA [Concomitant]
     Indication: PLATELET COUNT DECREASED
  3. CHEMOTHERAPY DRUG [Concomitant]
     Indication: PLATELET DISORDER

REACTIONS (3)
  - ABDOMINAL PAIN UPPER [None]
  - MYALGIA [None]
  - PAIN IN EXTREMITY [None]
